FAERS Safety Report 10853589 (Version 1)
Quarter: 2015Q1

REPORT INFORMATION
  Report Type: Spontaneous
  Country: US (occurrence: US)
  Receive Date: 20150223
  Receipt Date: 20150223
  Transmission Date: 20150721
  Serious: Yes (Hospitalization, Other)
  Sender: FDA-Public Use
  Company Number: US-AUROBINDO-AUR-APL-2014-04754

PATIENT
  Age: 75 Year
  Sex: Female

DRUGS (8)
  1. CLOPIDOGREL [Suspect]
     Active Substance: CLOPIDOGREL BISULFATE
     Indication: PRODUCT USED FOR UNKNOWN INDICATION
     Dosage: STARTED 5 DATS PRIOR TO ELECTIVE SURGERY AND DISCONTINUED POST PROCEDURE
     Route: 065
  2. ROSUVASTATIN [Concomitant]
     Active Substance: ROSUVASTATIN
     Indication: PRODUCT USED FOR UNKNOWN INDICATION
     Dosage: UNK
     Route: 065
  3. RISEDRONATE [Concomitant]
     Active Substance: RISEDRONATE SODIUM
     Indication: PRODUCT USED FOR UNKNOWN INDICATION
     Dosage: UNK
     Route: 065
  4. CLOPIDOGREL [Suspect]
     Active Substance: CLOPIDOGREL BISULFATE
     Dosage: 75 MG, UNK
     Route: 065
  5. ESOMEPRAZOLE [Concomitant]
     Active Substance: ESOMEPRAZOLE
     Indication: PRODUCT USED FOR UNKNOWN INDICATION
     Dosage: UNK
     Route: 065
  6. PREGABALIN. [Concomitant]
     Active Substance: PREGABALIN
     Indication: PRODUCT USED FOR UNKNOWN INDICATION
     Dosage: UNK
     Route: 065
  7. LEVOTHYROXINE [Concomitant]
     Active Substance: LEVOTHYROXINE
     Indication: PRODUCT USED FOR UNKNOWN INDICATION
     Dosage: UNK
     Route: 065
  8. LORTAB [Concomitant]
     Active Substance: ACETAMINOPHEN\HYDROCODONE BITARTRATE
     Indication: PRODUCT USED FOR UNKNOWN INDICATION
     Dosage: UNK
     Route: 065

REACTIONS (20)
  - Drug-induced liver injury [Recovered/Resolved]
  - Cholangitis [Recovered/Resolved]
  - Nausea [Recovered/Resolved]
  - Hyperthermia [Recovered/Resolved]
  - Haemoglobin decreased [Recovered/Resolved]
  - Haematocrit decreased [Recovered/Resolved]
  - Red blood cell sedimentation rate abnormal [Recovered/Resolved]
  - Blood bilirubin increased [Recovered/Resolved]
  - Alanine aminotransferase abnormal [Recovered/Resolved]
  - Vomiting [Recovered/Resolved]
  - Aspartate aminotransferase abnormal [Recovered/Resolved]
  - Blood alkaline phosphatase increased [Recovered/Resolved]
  - Urobilinogen urine increased [Recovered/Resolved]
  - Pyrexia [Recovered/Resolved]
  - Hepatic enzyme abnormal [Recovered/Resolved]
  - Platelet count decreased [Recovered/Resolved]
  - Neutrophil count increased [Recovered/Resolved]
  - Bilirubin conjugated increased [Recovered/Resolved]
  - Abdominal tenderness [Recovered/Resolved]
  - Abdominal distension [Recovered/Resolved]
